FAERS Safety Report 15335004 (Version 2)
Quarter: 2018Q3

REPORT INFORMATION
  Report Type: Report from Study
  Country: US (occurrence: US)
  Receive Date: 20180830
  Receipt Date: 20180831
  Transmission Date: 20181010
  Serious: Yes (Hospitalization)
  Sender: FDA-Public Use
  Company Number: US-JNJFOC-20180839859

PATIENT
  Age: 6 Year
  Sex: Female
  Weight: 21.9 kg

DRUGS (4)
  1. REMICADE [Suspect]
     Active Substance: INFLIXIMAB
     Indication: COLITIS ULCERATIVE
     Route: 042
     Dates: start: 20160512, end: 20170519
  2. 5?ASA [Concomitant]
     Active Substance: MESALAMINE
     Route: 054
  3. ENTYVIO [Concomitant]
     Active Substance: VEDOLIZUMAB
     Dosage: LAST DOSE ON 17?JAN?2018.
     Route: 065
     Dates: start: 20170519, end: 20180216
  4. NYSTATIN. [Concomitant]
     Active Substance: NYSTATIN
     Route: 065

REACTIONS (1)
  - Small intestinal obstruction [Recovered/Resolved]

NARRATIVE: CASE EVENT DATE: 20180822
